FAERS Safety Report 6181989-X (Version None)
Quarter: 2009Q2

REPORT INFORMATION
  Report Type: 
  Country: None (occurrence: None)
  Receive Date: 20090505
  Receipt Date: 20090430
  Transmission Date: 20091009
  Serious: Yes (Other)
  Sender: FDA-Public Use
  Company Number: 2009004643

PATIENT
  Age: 54 Year
  Sex: Male

DRUGS (1)
  1. TREANDA [Suspect]
     Indication: CHRONIC LYMPHOCYTIC LEUKAEMIA
     Dosage: 90 MG.M2 (90 MG/M2,1 IN 1 CYCLICAL), INTRAVENOUS
     Route: 042

REACTIONS (3)
  - AGRANULOCYTOSIS [None]
  - HAEMOGLOBIN ABNORMAL [None]
  - PLATELET DISORDER [None]
